FAERS Safety Report 15688388 (Version 1)
Quarter: 2018Q4

REPORT INFORMATION
  Report Type: Spontaneous
  Country: US (occurrence: US)
  Receive Date: 20181205
  Receipt Date: 20181205
  Transmission Date: 20190205
  Serious: No
  Sender: FDA-Public Use
  Company Number: US-CURIUM-201700430

PATIENT
  Age: 71 Year
  Sex: Male

DRUGS (1)
  1. ULTRA-TECHNEKOW [Suspect]
     Active Substance: TECHNETIUM TC-99M
     Indication: PRODUCT USED FOR UNKNOWN INDICATION
     Route: 050

REACTIONS (3)
  - Device issue [Recovered/Resolved]
  - Product contamination with body fluid [Recovered/Resolved]
  - Injury associated with device [Recovered/Resolved]
